FAERS Safety Report 6097289-2 (Version None)
Quarter: 2009Q1

REPORT INFORMATION
  Report Type: 
  Country: None (occurrence: None)
  Receive Date: 20090219
  Receipt Date: 20081105
  Transmission Date: 20090719
  Serious: No
  Sender: FDA-Public Use
  Company Number: WAES 0811USA00834

PATIENT
  Age: 50 Year
  Sex: Male

DRUGS (14)
  1. JANUVIA [Suspect]
     Dosage: PO
     Route: 048
  2. AMARYL [Suspect]
     Indication: TYPE 2 DIABETES MELLITUS
     Dosage: 2 MG/DAILY
     Dates: start: 20080801
  3. ACTOS [Suspect]
  4. CELLCEPT [Concomitant]
  5. ESOMEPRAZOLE MAGNESIUM [Concomitant]
  6. LAMICTAL [Concomitant]
  7. PROGRAF [Concomitant]
  8. RISPERDAL [Concomitant]
  9. WELLBUTRIN [Concomitant]
  10. [THERAPY UNSPECIFIED] [Concomitant]
  11. AMLODIPINE [Concomitant]
  12. ASPIRIN [Concomitant]
  13. CLONIDINE [Concomitant]
  14. TAMSULOSIN HYDROCHLORIDE [Concomitant]

REACTIONS (2)
  - BLOOD GLUCOSE INCREASED [None]
  - NERVOUSNESS [None]
